FAERS Safety Report 7837573-2 (Version None)
Quarter: 2011Q4

REPORT INFORMATION
  Report Type: 
  Country: None (occurrence: None)
  Receive Date: 20111024
  Receipt Date: 20110202
  Transmission Date: 20120403
  Serious: No
  Sender: FDA-Public Use
  Company Number: US-ABBOTT-11P-163-0702966-00

PATIENT
  Sex: Female
  Weight: 92.616 kg

DRUGS (6)
  1. LUPRON DEPOT [Suspect]
     Indication: ENDOMETRIOSIS
     Dates: start: 20110118
  2. FIBER [Concomitant]
     Indication: PRODUCT USED FOR UNKNOWN INDICATION
  3. AYGESTIN [Suspect]
     Indication: NIGHT SWEATS
     Dates: start: 20110118, end: 20110124
  4. AYGESTIN [Suspect]
     Indication: PROPHYLAXIS
  5. GLUCOPHAGE [Concomitant]
     Indication: INFERTILITY FEMALE
  6. MULTI-VITAMINS [Concomitant]
     Indication: PRODUCT USED FOR UNKNOWN INDICATION

REACTIONS (7)
  - NIGHT SWEATS [None]
  - POLLAKIURIA [None]
  - ARTHRALGIA [None]
  - CRYING [None]
  - DYSMENORRHOEA [None]
  - HEADACHE [None]
  - CHEST PAIN [None]
